FAERS Safety Report 17723514 (Version 1)
Quarter: 2020Q2

REPORT INFORMATION
  Report Type: Other
  Country: ES (occurrence: ES)
  Receive Date: 20200429
  Receipt Date: 20200429
  Transmission Date: 20200714
  Serious: Yes (Hospitalization, Other)
  Sender: FDA-Public Use
  Company Number: ES-GLENMARK PHARMACEUTICALS-2020GMK047563

PATIENT

DRUGS (1)
  1. LINEZOLID. [Suspect]
     Active Substance: LINEZOLID
     Indication: ENTEROCOCCAL INFECTION
     Dosage: 600 MILLIGRAM, OD (600 MG DIA)
     Route: 065
     Dates: start: 20200305, end: 20200311

REACTIONS (1)
  - Hepatitis cholestatic [Recovered/Resolved]

NARRATIVE: CASE EVENT DATE: 20200311
